FAERS Safety Report 8396375-1 (Version None)
Quarter: 2012Q1

REPORT INFORMATION
  Report Type: 
  Country: None (occurrence: None)
  Receive Date: 20120323
  Receipt Date: 20111122
  Transmission Date: 20120608
  Serious: Yes (Hospitalization)
  Sender: FDA-Public Use
  Company Number: 163-21880-11073030

PATIENT
  Age: 70 Year
  Sex: Male
  Weight: 110.2241 kg

DRUGS (11)
  1. REVLIMID [Suspect]
     Indication: MULTIPLE MYELOMA
     Dosage: 25;10 MG, 1 IN 1 D, HSX21 DAYS, PO
     Route: 048
     Dates: start: 20110401
  2. REVLIMID [Suspect]
     Indication: MULTIPLE MYELOMA
     Dosage: 25;10 MG, 1 IN 1 D, HSX21 DAYS, PO
     Route: 048
     Dates: start: 20081101
  3. REVLIMID [Suspect]
     Indication: MULTIPLE MYELOMA
     Dosage: 25;10 MG, 1 IN 1 D, HSX21 DAYS, PO
     Route: 048
     Dates: start: 20110321, end: 20110101
  4. LASIX [Concomitant]
  5. MELOXICAM [Concomitant]
  6. PRAVASTATIN [Concomitant]
  7. RAMIPRIL [Concomitant]
  8. POTASSIUM CHLORIDE [Concomitant]
  9. METFFORMIN HYDROCHLORIDE [Concomitant]
  10. GABAPENTIN [Concomitant]
  11. PRILOSEC [Concomitant]

REACTIONS (1)
  - ARTHRALGIA [None]
